FAERS Safety Report 9557887 (Version 2)
Quarter: 2013Q4

REPORT INFORMATION
  Report Type: Spontaneous
  Country: US (occurrence: US)
  Receive Date: 20130926
  Receipt Date: 20131001
  Transmission Date: 20140711
  Serious: Yes (Hospitalization, Other)
  Sender: FDA-Public Use
  Company Number: US-BAYER-2013-115497

PATIENT
  Sex: Female

DRUGS (1)
  1. AVELOX [Suspect]
     Indication: BRONCHITIS
     Dosage: UNK

REACTIONS (5)
  - Nephropathy [None]
  - Extrasystoles [None]
  - Atrial fibrillation [Not Recovered/Not Resolved]
  - Plasma cell disorder [None]
  - Blood disorder [None]
